FAERS Safety Report 25425890 (Version 2)
Quarter: 2025Q3

REPORT INFORMATION
  Report Type: Report from Study
  Country: US (occurrence: US)
  Receive Date: 20250612
  Receipt Date: 20250701
  Transmission Date: 20251020
  Serious: Yes (Death, Hospitalization, Other)
  Sender: MALLINCKRODT
  Company Number: US-MALLINCKRODT-MNK202503405

PATIENT
  Sex: Female
  Weight: 138 kg

DRUGS (1)
  1. CORTICOTROPIN [Suspect]
     Active Substance: CORTICOTROPIN
     Indication: Systemic lupus erythematosus
     Route: 058

REACTIONS (5)
  - Tooth abscess [Fatal]
  - Toxic shock syndrome [Fatal]
  - Shock [Fatal]
  - Occipital lobe stroke [Unknown]
  - Cerebral haemorrhage [Unknown]
